FAERS Safety Report 5803958-9 (Version None)
Quarter: 2008Q3

REPORT INFORMATION
  Report Type: 
  Country: None (occurrence: None)
  Receive Date: 20080703
  Receipt Date: 20080623
  Transmission Date: 20090109
  Serious: Yes (Other)
  Sender: FDA-Public Use
  Company Number: SPV1-2008-01369

PATIENT

DRUGS (1)
  1. LIALDA [Suspect]
     Dosage: UNK, UNKNOWN, ORAL
     Route: 048
     Dates: end: 20080101

REACTIONS (1)
  - NEPHRITIS INTERSTITIAL [None]
